FAERS Safety Report 8619171-6 (Version None)
Quarter: 2012Q3

REPORT INFORMATION
  Report Type: 
  Country: None (occurrence: None)
  Receive Date: 20120824
  Receipt Date: 20120816
  Transmission Date: 20120928
  Serious: No
  Sender: FDA-Public Use
  Company Number: US-BAYER-2012-086168

PATIENT
  Age: 9 Year
  Sex: Female
  Weight: 32 kg

DRUGS (4)
  1. ALEVE (CAPLET) [Suspect]
     Indication: PRODUCT USED FOR UNKNOWN INDICATION
     Dosage: 1 DF, QD
     Route: 048
  2. ALLERGY MEDICATION [Concomitant]
  3. ATTENTION DEFICIT HYPERACTIVITY DISORDER [Concomitant]
  4. ALEVE (CAPLET) [Suspect]
     Dosage: 2 DF, QD
     Route: 048
     Dates: start: 20120816, end: 20120816

REACTIONS (1)
  - NO ADVERSE EVENT [None]
